FAERS Safety Report 8898422 (Version 1)
Quarter: 2012Q4

REPORT INFORMATION
  Report Type: 
  Country: US (occurrence: US)
  Receive Date: 20121108
  Receipt Date: 20121108
  Transmission Date: 20130627
  Serious: No
  Sender: FDA-Public Use
  Company Number: US-AMGEN-USASP2012024034

PATIENT
  Age: 33 Year
  Sex: Female
  Weight: 78.01 kg

DRUGS (15)
  1. ENBREL [Suspect]
     Indication: RHEUMATOID ARTHRITIS
     Dosage: 50 mg, qwk
     Route: 058
  2. METHOTREXATE [Concomitant]
     Dosage: 2.5 mg, UNK
     Route: 048
  3. PROBIOTIC [Concomitant]
     Dosage: UNK
     Route: 048
  4. FLUOCINONIDE [Concomitant]
     Dosage: 0.05 %, UNK
  5. VIVELLE                            /00045401/ [Concomitant]
     Dosage: 0.05 mg, UNK
  6. FOLIC ACID [Concomitant]
     Dosage: 1 mg, UNK
     Route: 048
  7. ATENOLOL [Concomitant]
     Dosage: 25 mg, UNK
     Route: 048
  8. PREDNISONE [Concomitant]
     Dosage: 1 mg, UNK
     Route: 048
  9. LOVASTATIN [Concomitant]
     Dosage: 10 mg, UNK
     Route: 048
  10. LEVOTHYROXIN [Concomitant]
     Dosage: 25 mug, UNK
     Route: 048
  11. DIGOXIN [Concomitant]
     Dosage: 0.125 mg, UNK
     Route: 048
  12. OMEPRAZOLE [Concomitant]
     Dosage: 20 mg, UNK
     Route: 048
  13. CYMBALTA [Concomitant]
     Dosage: 20 mg, UNK
     Route: 048
  14. HYDROCODONE/APAP [Concomitant]
     Dosage: UNK
     Route: 048
  15. STOOL SOFTENER [Concomitant]
     Dosage: 100 mg, UNK
     Route: 048

REACTIONS (1)
  - Lung infection [Unknown]
